FAERS Safety Report 25047284 (Version 1)
Quarter: 2025Q1

REPORT INFORMATION
  Report Type: Spontaneous
  Country: US (occurrence: US)
  Receive Date: 20250306
  Receipt Date: 20250306
  Transmission Date: 20250408
  Serious: No
  Sender: NOVARTIS
  Company Number: US-HALEON-2231590

PATIENT
  Sex: Male

DRUGS (2)
  1. LAMISIL [Suspect]
     Active Substance: TERBINAFINE HYDROCHLORIDE
     Indication: Tinea pedis
     Dosage: UNK, QD (TOPICAL)
     Route: 065
     Dates: start: 20250120
  2. TIMOLOL [Concomitant]
     Active Substance: TIMOLOL
     Indication: Glaucoma
     Dosage: 1 DOSAGE FORM, QD
     Route: 065

REACTIONS (1)
  - Drug ineffective [Unknown]
